FAERS Safety Report 21179677 (Version 1)
Quarter: 2022Q3

REPORT INFORMATION
  Report Type: Spontaneous
  Country: US (occurrence: None)
  Receive Date: 20220805
  Receipt Date: 20220805
  Transmission Date: 20221027
  Serious: No
  Sender: FDA-Public Use
  Company Number: None

PATIENT
  Age: 59 Year
  Sex: Female

DRUGS (1)
  1. BEBTELOVIMAB [Suspect]
     Active Substance: BEBTELOVIMAB
     Indication: COVID-19
     Dosage: FREQUENCY : ONCE;?
     Route: 042
     Dates: start: 20220614, end: 20220614

REACTIONS (6)
  - Cough [None]
  - Wheezing [None]
  - Nausea [None]
  - Vomiting [None]
  - Hyperhidrosis [None]
  - Abdominal pain [None]

NARRATIVE: CASE EVENT DATE: 20220614
